FAERS Safety Report 4423309-4 (Version None)
Quarter: 2004Q3

REPORT INFORMATION
  Report Type: 
  Country: None (occurrence: None)
  Receive Date: 20040811
  Receipt Date: 20040730
  Transmission Date: 20050211
  Serious: Yes (Hospitalization)
  Sender: FDA-Public Use
  Company Number: JP-GLAXOSMITHKLINE-B0341414A

PATIENT
  Age: 58 Year
  Sex: Male

DRUGS (10)
  1. PAXIL [Suspect]
     Indication: DEPRESSION
     Dosage: 10MG TWICE PER DAY
     Route: 048
     Dates: start: 20040601, end: 20040606
  2. DEPAKENE [Suspect]
     Indication: BIPOLAR I DISORDER
     Dosage: 400MG PER DAY
     Route: 048
     Dates: start: 20040519, end: 20040606
  3. DEPAKENE [Suspect]
     Dosage: 400MG PER DAY
     Route: 048
     Dates: start: 20040608
  4. LEXOTAN [Concomitant]
     Indication: BIPOLAR I DISORDER
     Dosage: 2MG TWICE PER DAY
     Route: 048
     Dates: end: 20040606
  5. LEXOTAN [Concomitant]
     Dosage: 2MG TWICE PER DAY
     Route: 048
     Dates: start: 20040608
  6. CHINESE MEDICATION [Concomitant]
     Indication: BIPOLAR I DISORDER
     Dosage: 2.5G THREE TIMES PER DAY
     Route: 048
     Dates: start: 20040422
  7. RISPERDAL [Concomitant]
     Indication: BIPOLAR I DISORDER
     Dosage: 2MG PER DAY
     Route: 048
     Dates: start: 20040408, end: 20040606
  8. RISPERDAL [Concomitant]
     Dosage: 2MG PER DAY
     Route: 048
     Dates: start: 20040608
  9. MIRADOL [Concomitant]
     Indication: BIPOLAR I DISORDER
     Dosage: 66.67MG THREE TIMES PER DAY
     Route: 048
     Dates: start: 20040607, end: 20040608
  10. SEROQUEL [Concomitant]
     Indication: BIPOLAR I DISORDER
     Dosage: 25MG PER DAY
     Route: 048
     Dates: start: 20040607, end: 20040608

REACTIONS (14)
  - AGITATION [None]
  - CHILLS [None]
  - DIARRHOEA [None]
  - DIZZINESS [None]
  - DYSKINESIA [None]
  - INSOMNIA [None]
  - IRRITABILITY [None]
  - MALAISE [None]
  - MUSCLE CONTRACTIONS INVOLUNTARY [None]
  - MUSCLE TWITCHING [None]
  - NASOPHARYNGITIS [None]
  - NAUSEA [None]
  - SPEECH DISORDER [None]
  - TINNITUS [None]
